FAERS Safety Report 23210554 (Version 3)
Quarter: 2024Q1

REPORT INFORMATION
  Report Type: Spontaneous
  Country: US (occurrence: US)
  Receive Date: 20231121
  Receipt Date: 20240117
  Transmission Date: 20240409
  Serious: No
  Sender: FDA-Public Use
  Company Number: US-PFIZER INC-202300362225

PATIENT
  Age: 18 Year
  Sex: Female

DRUGS (1)
  1. GENOTROPIN [Suspect]
     Active Substance: SOMATROPIN
     Dosage: DAILY 6 DAYS WEEK

REACTIONS (4)
  - Drug dose omission by device [Unknown]
  - Device use issue [Unknown]
  - Device breakage [Unknown]
  - Device information output issue [Unknown]
